FAERS Safety Report 15514027 (Version 1)
Quarter: 2018Q4

REPORT INFORMATION
  Report Type: Spontaneous
  Country: GB (occurrence: GB)
  Receive Date: 20181016
  Receipt Date: 20181016
  Transmission Date: 20190205
  Serious: Yes (Other)
  Sender: FDA-Public Use
  Company Number: GB-009507513-1810GBR006447

PATIENT
  Age: 29 Year
  Sex: Female
  Weight: 113.39 kg

DRUGS (4)
  1. MOMETASONE FUROATE. [Suspect]
     Active Substance: MOMETASONE FUROATE
     Indication: RHINITIS ALLERGIC
     Dosage: 2 DF, IN EACH NOSTRIL
     Route: 045
     Dates: start: 20170301, end: 20171130
  2. OMEPRAZOLE. [Concomitant]
     Active Substance: OMEPRAZOLE
  3. NICOTINE. [Concomitant]
     Active Substance: NICOTINE
  4. CETIRIZINE HYDROCHLORIDE. [Concomitant]
     Active Substance: CETIRIZINE HYDROCHLORIDE

REACTIONS (1)
  - Alopecia [Not Recovered/Not Resolved]
